FAERS Safety Report 10177264 (Version 2)
Quarter: 2014Q3

REPORT INFORMATION
  Report Type: Spontaneous
  Country: US (occurrence: US)
  Receive Date: 20140516
  Receipt Date: 20140701
  Transmission Date: 20150326
  Serious: Yes (Hospitalization)
  Sender: FDA-Public Use
  Company Number: US-GLAXOSMITHKLINE-A1073384A

PATIENT
  Sex: Female

DRUGS (7)
  1. TACROLIMUS. [Concomitant]
     Active Substance: TACROLIMUS
  2. PROCARDIA [Concomitant]
     Active Substance: NIFEDIPINE
  3. PROTONIX [Concomitant]
     Active Substance: PANTOPRAZOLE SODIUM
  4. MYCELEX [Concomitant]
     Active Substance: CLOTRIMAZOLE
  5. MEPRON [Suspect]
     Active Substance: ATOVAQUONE
     Indication: PRODUCT USED FOR UNKNOWN INDICATION
     Dosage: 10ML PER DAY
     Route: 048
  6. CELLCEPT [Concomitant]
     Active Substance: MYCOPHENOLATE MOFETIL\MYCOPHENOLATE MOFETIL HYDROCHLORIDE
  7. PREDNISON [Concomitant]
     Active Substance: PREDNISONE

REACTIONS (2)
  - Organ transplant [Unknown]
  - Investigation [Unknown]
